FAERS Safety Report 15398583 (Version 3)
Quarter: 2018Q4

REPORT INFORMATION
  Report Type: Spontaneous
  Country: JP (occurrence: JP)
  Receive Date: 20180918
  Receipt Date: 20181127
  Transmission Date: 20190204
  Serious: Yes (Death)
  Sender: FDA-Public Use
  Company Number: JP-MITSUBISHI TANABE PHARMA CORPORATION-MTPC2018-0021556

PATIENT
  Age: 68 Year
  Sex: Male

DRUGS (2)
  1. HYPNOTICS AND SEDATIVES, ANTIANXIETICS [Concomitant]
     Route: 065
     Dates: start: 20180508
  2. RADICUT [Suspect]
     Active Substance: EDARAVONE
     Indication: AMYOTROPHIC LATERAL SCLEROSIS
     Route: 041
     Dates: start: 201710, end: 20180513

REACTIONS (1)
  - Amyotrophic lateral sclerosis [Fatal]
